FAERS Safety Report 4439789-4 (Version None)
Quarter: 2004Q3

REPORT INFORMATION
  Report Type: 
  Country: None (occurrence: None)
  Receive Date: 20040831
  Receipt Date: 20040817
  Transmission Date: 20050211
  Serious: Yes (Death, Other)
  Sender: FDA-Public Use
  Company Number: 2004IC000840

PATIENT
  Age: 79 Year
  Sex: Male

DRUGS (5)
  1. FLUOROURACIL [Suspect]
     Indication: GASTRIC CANCER
     Dosage: 490 MG; INTRAVENOUS
     Route: 042
     Dates: start: 20040510, end: 20040514
  2. CISPLATIN [Suspect]
     Indication: GASTRIC CANCER
     Dosage: 14 MG; INTRAVENOUS
     Route: 042
     Dates: start: 20040510, end: 20040513
  3. KYTRIL [Concomitant]
  4. ADALAT [Concomitant]
  5. SELBEX [Concomitant]

REACTIONS (8)
  - ALANINE AMINOTRANSFERASE INCREASED [None]
  - ASPARTATE AMINOTRANSFERASE INCREASED [None]
  - BONE MARROW DEPRESSION [None]
  - DIHYDROPYRIMIDINE DEHYDROGENASE DEFICIENCY [None]
  - HEPATIC FUNCTION ABNORMAL [None]
  - HYPERAMYLASAEMIA [None]
  - LABORATORY TEST ABNORMAL [None]
  - RENAL IMPAIRMENT [None]
